FAERS Safety Report 6155571-4 (Version None)
Quarter: 2009Q2

REPORT INFORMATION
  Report Type: 
  Country: None (occurrence: None)
  Receive Date: 20090413
  Receipt Date: 20090413
  Transmission Date: 20091009
  Serious: Yes (Other)
  Sender: FDA-Public Use
  Company Number: None

PATIENT
  Sex: Female
  Weight: 76.2043 kg

DRUGS (4)
  1. LIPITOR [Suspect]
     Indication: BLOOD CHOLESTEROL
     Dosage: 10MG A DAY 1 PILL
  2. SIMVASTATIN [Suspect]
     Indication: BLOOD CHOLESTEROL
  3. FOSAMAX [Suspect]
  4. HYDROCLOROTHIAZE 25 MG [Suspect]

REACTIONS (3)
  - HYPERSENSITIVITY [None]
  - MUSCLE ATROPHY [None]
  - PAIN [None]
